FAERS Safety Report 11582816 (Version 1)
Quarter: 2015Q3

REPORT INFORMATION
  Report Type: Spontaneous
  Country: US (occurrence: None)
  Receive Date: 20150930
  Receipt Date: 20150930
  Transmission Date: 20151125
  Serious: No
  Sender: FDA-Public Use
  Company Number: None

PATIENT
  Age: 47 Year
  Sex: Female
  Weight: 81.65 kg

DRUGS (15)
  1. HYDROCODONE [Concomitant]
     Active Substance: HYDROCODONE
  2. CLONIDINE. [Concomitant]
     Active Substance: CLONIDINE
  3. INDAPAMIDE. [Concomitant]
     Active Substance: INDAPAMIDE
  4. CLONAZEPAM. [Concomitant]
     Active Substance: CLONAZEPAM
  5. BUPRION [Concomitant]
  6. TRAZODONE [Concomitant]
     Active Substance: TRAZODONE HYDROCHLORIDE
  7. ALORA [Suspect]
     Active Substance: ESTRADIOL
     Indication: MENOPAUSAL DISORDER
     Dosage: 4 A MONTH
     Route: 062
     Dates: start: 20150120
  8. METOCOBAMOL [Concomitant]
  9. IRON [Concomitant]
     Active Substance: IRON
  10. BISOPROL [Concomitant]
  11. ZOLPIDEM [Concomitant]
     Active Substance: ZOLPIDEM\ZOLPIDEM TARTRATE
  12. METROPOLOL [Concomitant]
     Active Substance: METOPROLOL
  13. LATUDA [Concomitant]
     Active Substance: LURASIDONE HYDROCHLORIDE
  14. FUROSEMIDE. [Concomitant]
     Active Substance: FUROSEMIDE
  15. CLONIDINE. [Concomitant]
     Active Substance: CLONIDINE

REACTIONS (5)
  - Application site swelling [None]
  - Treatment failure [None]
  - Product substitution issue [None]
  - Application site irritation [None]
  - Application site pruritus [None]

NARRATIVE: CASE EVENT DATE: 20150120
